FAERS Safety Report 4490544-9 (Version None)
Quarter: 2004Q4

REPORT INFORMATION
  Report Type: 
  Country: None (occurrence: None)
  Receive Date: 20041028
  Receipt Date: 20041019
  Transmission Date: 20050328
  Serious: Yes (Death)
  Sender: FDA-Public Use
  Company Number: 2004240135KR

PATIENT

DRUGS (1)
  1. ZYVOX [Suspect]
     Indication: ENTEROBACTER PNEUMONIA
     Dosage: 300 ML, PARENTERAL
     Route: 051

REACTIONS (1)
  - THROMBOCYTOPENIA [None]
